FAERS Safety Report 24165294 (Version 3)
Quarter: 2024Q3

REPORT INFORMATION
  Report Type: Report from Study
  Country: AT (occurrence: AT)
  Receive Date: 20240802
  Receipt Date: 20240905
  Transmission Date: 20241017
  Serious: Yes (Hospitalization)
  Sender: BAXTER
  Company Number: AT-ROCHE-2182938

PATIENT
  Age: 37 Year
  Sex: Female

DRUGS (73)
  1. CYCLOPHOSPHAMIDE [Suspect]
     Active Substance: CYCLOPHOSPHAMIDE
     Indication: HER2 positive breast cancer
     Dosage: 500 MG/M2, FREQUENCY TEXT: OTHER
     Route: 042
     Dates: start: 20161005, end: 20161005
  2. TAXOTERE [Suspect]
     Active Substance: DOCETAXEL
     Indication: HER2 positive breast cancer
     Dosage: 75 MG/M2, EVERY 3 WEEK
     Route: 042
     Dates: start: 20161020, end: 20161020
  3. TAXOTERE [Suspect]
     Active Substance: DOCETAXEL
     Dosage: 100 MG/M2, EVERY 3 WEEK
     Route: 042
     Dates: start: 20161201, end: 20170202
  4. TAXOTERE [Suspect]
     Active Substance: DOCETAXEL
     Dosage: 75 MG/M2, EVERY 3 WEEK
     Route: 042
     Dates: start: 20161111, end: 20161111
  5. KADCYLA [Suspect]
     Active Substance: ADO-TRASTUZUMAB EMTANSINE
     Indication: HER2 positive breast cancer
     Dosage: 3.6 MG/KG, EVERY 3 WEEK
     Route: 042
     Dates: start: 20180205, end: 20190816
  6. PERJETA [Suspect]
     Active Substance: PERTUZUMAB
     Indication: HER2 positive breast cancer
     Dosage: 420 MG, EVERY 3 WEEK
     Route: 042
     Dates: start: 20170202, end: 20180108
  7. PERJETA [Suspect]
     Active Substance: PERTUZUMAB
     Dosage: 840 MG, EVERY 3 WEEK
     Route: 042
     Dates: start: 20170112, end: 20170112
  8. PERJETA [Suspect]
     Active Substance: PERTUZUMAB
     Dosage: 840 MG, EVERY 3 WEEK
     Route: 042
     Dates: start: 20161020, end: 20161020
  9. PERJETA [Suspect]
     Active Substance: PERTUZUMAB
     Dosage: 420 MG, EVERY 3 WEEK
     Route: 042
     Dates: start: 20190906, end: 20210409
  10. TUCATINIB [Suspect]
     Active Substance: TUCATINIB
     Indication: HER2 positive breast cancer
     Dosage: 300 MG, 0.5 DAY
     Route: 048
     Dates: start: 20210430, end: 20210927
  11. TUCATINIB [Suspect]
     Active Substance: TUCATINIB
     Dosage: 300 MG, 0.5 DAY
     Route: 048
     Dates: start: 20210929, end: 20221023
  12. ELLENCE [Suspect]
     Active Substance: EPIRUBICIN HYDROCHLORIDE
     Indication: HER2 positive breast cancer
     Dosage: 100 MG/M2, FREQUENCY TEXT:OTHER
     Route: 042
     Dates: start: 20161005, end: 20161005
  13. ELLENCE [Suspect]
     Active Substance: EPIRUBICIN HYDROCHLORIDE
     Dosage: 100 MG/M2, FREQUENCY TEXT:OTHER, ACTION TAKEN: DRUG DISCONTINUED
     Route: 042
     Dates: start: 20161005, end: 20161005
  14. TUCATINIB [Suspect]
     Active Substance: TUCATINIB
     Indication: HER2 positive breast cancer
     Dosage: 300 MG, EVERY 0.5 DAY
     Route: 048
     Dates: start: 20210929, end: 20221023
  15. TUCATINIB [Suspect]
     Active Substance: TUCATINIB
     Dosage: 300 MG, EVERY 0.5 DAY
     Route: 048
     Dates: end: 20210927
  16. HERCEPTIN [Suspect]
     Active Substance: TRASTUZUMAB
     Indication: HER2 positive breast cancer
     Dosage: 8 MG/KG, EVERY 3 WEEK
     Route: 042
     Dates: start: 20161020, end: 20161020
  17. HERCEPTIN [Suspect]
     Active Substance: TRASTUZUMAB
     Dosage: 8 MG/KG, EVERY 3 WEEK
     Route: 042
     Dates: start: 20170112, end: 20170112
  18. HERCEPTIN [Suspect]
     Active Substance: TRASTUZUMAB
     Dosage: 6 MG/KG, EVERY 3 WEEK
     Route: 042
     Dates: start: 20170202, end: 20180108
  19. HERCEPTIN [Suspect]
     Active Substance: TRASTUZUMAB
     Dosage: 6 MG/KG, EVERY 3 WEEK
     Route: 042
     Dates: start: 20190906, end: 20210927
  20. HERCEPTIN [Suspect]
     Active Substance: TRASTUZUMAB
     Dosage: 6 MG/KG, EVERY 3 WEEK
     Route: 042
     Dates: start: 20210929, end: 20220930
  21. XELODA [Suspect]
     Active Substance: CAPECITABINE
     Indication: HER2 positive breast cancer
     Dosage: 1000 MG, FREQUENCY TEXT:OTHER
     Route: 048
     Dates: start: 20210904, end: 20210927
  22. XELODA [Suspect]
     Active Substance: CAPECITABINE
     Dosage: 1000 MG, FREQUENCY TEXT:OTHER
     Route: 048
     Dates: start: 20210929, end: 20220114
  23. XELODA [Suspect]
     Active Substance: CAPECITABINE
     Dosage: 1000 MG, FREQUENCY TEXT:OTHER
     Route: 048
     Dates: start: 20220204, end: 20220930
  24. XELODA [Suspect]
     Active Substance: CAPECITABINE
     Dosage: 1500 MG, FREQUENCY TEXT:OTHER
     Route: 048
     Dates: end: 20210903
  25. XELODA [Suspect]
     Active Substance: CAPECITABINE
     Dosage: 500 MG, FREQUENCY TEXT:OTHER
     Route: 048
     Dates: start: 20220930, end: 20221024
  26. FAM-TRASTUZUMAB DERUXTECAN-NXKI [Suspect]
     Active Substance: FAM-TRASTUZUMAB DERUXTECAN-NXKI
     Indication: HER2 positive breast cancer
     Dosage: 4.4 MG/KG, EVERY 3 WEEK
     Route: 042
     Dates: start: 20230811
  27. FAM-TRASTUZUMAB DERUXTECAN-NXKI [Suspect]
     Active Substance: FAM-TRASTUZUMAB DERUXTECAN-NXKI
     Dosage: 4.4 MG/KG, EVERY 3 WEEK
     Route: 042
     Dates: start: 20221202, end: 20230714
  28. FAM-TRASTUZUMAB DERUXTECAN-NXKI [Suspect]
     Active Substance: FAM-TRASTUZUMAB DERUXTECAN-NXKI
     Dosage: 5.4 MG/KG, EVERY 3 WEEK
     Route: 042
     Dates: start: 20221114
  29. SERTRALINE HYDROCHLORIDE [Concomitant]
     Active Substance: SERTRALINE HYDROCHLORIDE
     Dosage: UNK
     Route: 065
     Dates: start: 20171016
  30. Paspertin [Concomitant]
     Dosage: UNK
     Route: 065
  31. ZOFRAN [Concomitant]
     Active Substance: ONDANSETRON HYDROCHLORIDE
     Dosage: UNK
     Route: 065
  32. GLANDOMED [Concomitant]
     Dosage: UNK
     Route: 065
  33. HYDROMORPHONE HYDROCHLORIDE [Concomitant]
     Active Substance: HYDROMORPHONE HYDROCHLORIDE
     Dosage: ONGOING = CHECKED
     Route: 065
     Dates: start: 20210410
  34. DEXIBUPROFEN [Concomitant]
     Active Substance: DEXIBUPROFEN
     Dosage: ONGOING = CHECKED
     Route: 065
     Dates: start: 20210312
  35. ARANESP [Concomitant]
     Active Substance: DARBEPOETIN ALFA
     Dosage: UNK
     Route: 065
  36. LIPEGFILGRASTIM [Concomitant]
     Active Substance: LIPEGFILGRASTIM
     Dosage: UNK
     Route: 065
  37. SERTRALINE HYDROCHLORIDE [Concomitant]
     Active Substance: SERTRALINE HYDROCHLORIDE
     Dosage: UNK
     Route: 065
  38. MILNACIPRAN [Concomitant]
     Active Substance: MILNACIPRAN
     Dosage: ONGOING = CHECKED
     Route: 065
     Dates: start: 20221123
  39. GUAR GUM [Concomitant]
     Active Substance: GUAR GUM
     Dosage: UNK
     Route: 065
  40. LASIX [Concomitant]
     Active Substance: FUROSEMIDE
     Dosage: UNK
     Route: 065
  41. FENTANYL [Concomitant]
     Active Substance: FENTANYL\FENTANYL CITRATE
     Dosage: UNK
     Route: 065
  42. FILGRASTIM [Concomitant]
     Active Substance: FILGRASTIM
     Dosage: UNK
     Route: 065
  43. LEVETIRACETAM [Concomitant]
     Active Substance: LEVETIRACETAM
     Indication: Epilepsy
     Dosage: ONGOING = CHECKED
     Route: 065
     Dates: start: 20220201
  44. LEVOCETIRIZINE [Concomitant]
     Active Substance: LEVOCETIRIZINE
     Dosage: ONGOING = CHECKED
     Route: 065
     Dates: start: 20220801
  45. VIMPAT [Concomitant]
     Active Substance: LACOSAMIDE
     Dosage: UNK
     Route: 065
  46. CALCIUM CARBONATE\CHOLECALCIFEROL [Concomitant]
     Active Substance: CALCIUM CARBONATE\CHOLECALCIFEROL
     Dosage: ONGOING = CHECKED
     Route: 065
     Dates: start: 20161112
  47. XGEVA [Concomitant]
     Active Substance: DENOSUMAB
     Dosage: UNK
     Route: 065
     Dates: start: 20161201
  48. APREPITANT [Concomitant]
     Active Substance: APREPITANT
     Indication: Nausea
     Dosage: ONGOING = CHECKED
     Route: 065
     Dates: start: 20221202
  49. BISOPROLOL FUMARATE [Concomitant]
     Active Substance: BISOPROLOL FUMARATE
     Dosage: UNK
     Route: 065
     Dates: start: 20170227
  50. RAMIPRIL [Concomitant]
     Active Substance: RAMIPRIL
     Dosage: UNK
     Route: 065
     Dates: start: 20170227
  51. LOPERAMIDE HYDROCHLORIDE [Concomitant]
     Active Substance: LOPERAMIDE HYDROCHLORIDE
     Indication: Diarrhoea
     Dosage: UNK
     Route: 065
     Dates: start: 20171127
  52. ONDANSETRON HYDROCHLORIDE [Concomitant]
     Active Substance: ONDANSETRON HYDROCHLORIDE
     Indication: Nausea
     Dosage: ONGOING = CHECKED
     Route: 065
     Dates: start: 20181105
  53. ONDANSETRON HYDROCHLORIDE [Concomitant]
     Active Substance: ONDANSETRON HYDROCHLORIDE
     Dosage: UNK
     Route: 065
  54. ESOMEPRAZOLE [Concomitant]
     Active Substance: ESOMEPRAZOLE
     Dosage: ONGOING = CHECKED
     Route: 065
     Dates: start: 20221123
  55. HALCION [Concomitant]
     Active Substance: TRIAZOLAM
     Dosage: UNK
     Route: 065
  56. POTASSIUM CHLORIDE [Concomitant]
     Active Substance: POTASSIUM CHLORIDE
     Dosage: UNK
     Route: 065
  57. LAXAGOL [Concomitant]
     Dosage: UNK
     Route: 065
  58. LAXAGOL [Concomitant]
     Dosage: ONGOING = CHECKED
     Route: 065
     Dates: start: 20201120
  59. SUCRALAN [Concomitant]
     Dosage: UNK
     Route: 065
     Dates: start: 20161215
  60. TRAZODONE HYDROCHLORIDE [Concomitant]
     Active Substance: TRAZODONE HYDROCHLORIDE
     Dosage: ONGOING = CHECKED
     Route: 065
     Dates: start: 20221129
  61. CEOLAT [Concomitant]
     Dosage: UNK
     Route: 065
  62. ALPRAZOLAM [Concomitant]
     Active Substance: ALPRAZOLAM
     Dosage: UNK
     Route: 065
  63. XARELTO [Concomitant]
     Active Substance: RIVAROXABAN
     Dosage: UNK
     Route: 065
  64. METOCLOPRAMIDE [Concomitant]
     Active Substance: METOCLOPRAMIDE
     Dosage: UNK
     Route: 065
     Dates: start: 20180205
  65. TAZOBACTAM [Concomitant]
     Active Substance: TAZOBACTAM
     Dosage: UNK
     Route: 065
  66. IMODIUM [Concomitant]
     Active Substance: LOPERAMIDE HYDROCHLORIDE
     Dosage: UNK
     Route: 065
  67. AMOXICILLIN\CLAVULANATE POTASSIUM [Concomitant]
     Active Substance: AMOXICILLIN\CLAVULANATE POTASSIUM
     Dosage: UNK
     Route: 065
  68. HALDOL [Concomitant]
     Active Substance: HALOPERIDOL
     Dosage: UNK
     Route: 065
  69. PANTOPRAZOLE SODIUM [Concomitant]
     Active Substance: PANTOPRAZOLE SODIUM
     Dosage: UNK
     Route: 065
  70. PERFALGAN [Concomitant]
     Active Substance: ACETAMINOPHEN
     Dosage: UNK
     Route: 065
  71. CLOBAZAM [Concomitant]
     Active Substance: CLOBAZAM
     Dosage: UNK
     Route: 065
  72. MOVICOL [Concomitant]
     Active Substance: POLYETHYLENE GLYCOL 3350\POTASSIUM CHLORIDE\SODIUM BICARBONATE\SODIUM CHLORIDE
     Dosage: UNK
     Route: 065
  73. AMOXICILLIN\CLAVULANATE POTASSIUM [Concomitant]
     Active Substance: AMOXICILLIN\CLAVULANATE POTASSIUM
     Dosage: UNK
     Route: 065

REACTIONS (3)
  - Dehydration [Recovered/Resolved]
  - Nausea [Recovered/Resolved]
  - Headache [Recovered/Resolved]

NARRATIVE: CASE EVENT DATE: 20180815
